FAERS Safety Report 25074235 (Version 1)
Quarter: 2025Q1

REPORT INFORMATION
  Report Type: Spontaneous
  Country: JP (occurrence: JP)
  Receive Date: 20250313
  Receipt Date: 20250313
  Transmission Date: 20250409
  Serious: Yes (Other)
  Sender: ALEXION PHARMACEUTICALS
  Company Number: JP-ASTRAZENECA-250023174_032620_P_1

PATIENT
  Age: 41 Year
  Weight: 66 kg

DRUGS (2)
  1. FASENRA [Suspect]
     Active Substance: BENRALIZUMAB
     Indication: Asthma
  2. PREDNISOLONE [Concomitant]
     Active Substance: PREDNISOLONE
     Indication: Eosinophilic pneumonia chronic
     Route: 065

REACTIONS (2)
  - Gastritis erosive [Unknown]
  - Chronic eosinophilic rhinosinusitis [Unknown]
